FAERS Safety Report 6018922-7 (Version None)
Quarter: 2008Q4

REPORT INFORMATION
  Report Type: 
  Country: None (occurrence: None)
  Receive Date: 20081224
  Receipt Date: 20081215
  Transmission Date: 20090506
  Serious: Yes (Death)
  Sender: FDA-Public Use
  Company Number: US-PFIZER INC-2008154020

PATIENT
  Age: 34 Year
  Sex: Male

DRUGS (4)
  1. LITHIUM CARBONATE [Suspect]
  2. CLONAZEPAM [Suspect]
  3. COCAINE [Suspect]
  4. ROSIGLITAZONE [Suspect]

REACTIONS (1)
  - DEATH [None]
